FAERS Safety Report 17185695 (Version 1)
Quarter: 2020Q3

REPORT INFORMATION
  Report Type: Report from Study
  Country: TW (occurrence: TW)
  Receive Date: 20191220
  Receipt Date: 20191220
  Transmission Date: 20201104
  Serious: Yes (Hospitalization)
  Sender: FDA-Public Use
  Company Number: TW-ALEXION PHARMACEUTICALS INC.-A201915034

PATIENT
  Age: 24 Year
  Sex: Male
  Weight: 66 kg

DRUGS (13)
  1. DOXIMYCIN [Concomitant]
     Active Substance: DOXYCYCLINE
     Indication: HORDEOLUM
     Dosage: 100 MG, BID
     Route: 048
     Dates: start: 20190823, end: 20190830
  2. ACETEIN                            /00082801/ [Concomitant]
     Indication: UPPER RESPIRATORY TRACT INFECTION
     Dosage: 600 MG, BID
     Route: 048
     Dates: start: 20180223
  3. ZALAIN [Concomitant]
     Active Substance: SERTACONAZOLE NITRATE
     Indication: BODY TINEA
     Dosage: UNK UNK, BID
     Route: 061
     Dates: start: 20190604
  4. RAVULIZUMAB. [Suspect]
     Active Substance: RAVULIZUMAB
     Dosage: 3300 MG, UNK
     Route: 042
     Dates: start: 20190730
  5. BETAMETHASONE W/NEOMYCIN [Concomitant]
     Indication: HORDEOLUM
     Dosage: UNK MG, UNK (BEFORE SLEEP)
     Route: 047
     Dates: start: 20160622
  6. BETAMETHASONE W/NEOMYCIN [Concomitant]
     Dosage: UNK MG, UNK (BEFORE SLEEP)
     Route: 047
     Dates: start: 20161025
  7. LEVOCETIRIZINE [Concomitant]
     Active Substance: LEVOCETIRIZINE
     Indication: UPPER RESPIRATORY TRACT INFECTION
     Dosage: 5 MG, QHS
     Route: 048
     Dates: start: 20180221
  8. DEXAMETHASONE NEO [Concomitant]
     Indication: HORDEOLUM
     Dosage: UNK MG, QID
     Route: 047
     Dates: start: 20160622
  9. DEXAMETHASONE NEO [Concomitant]
     Dosage: UNK MG, QID
     Route: 047
     Dates: start: 20161025
  10. DOXIMYCIN [Concomitant]
     Active Substance: DOXYCYCLINE
     Indication: BACTERAEMIA
  11. RAVULIZUMAB. [Suspect]
     Active Substance: RAVULIZUMAB
     Dosage: 3300 UNK, UNK
     Route: 042
     Dates: start: 20190924
  12. OPIUM TINCTURE [Concomitant]
     Active Substance: MORPHINE
     Indication: UPPER RESPIRATORY TRACT INFECTION
     Dosage: TABLESPOON DOSING UNIT, TID
     Route: 048
     Dates: start: 20180221
  13. RAVULIZUMAB. [Suspect]
     Active Substance: RAVULIZUMAB
     Indication: PAROXYSMAL NOCTURNAL HAEMOGLOBINURIA
     Dosage: 1600 MG, UNK
     Route: 042
     Dates: start: 20160412

REACTIONS (2)
  - Bacteraemia [Recovered/Resolved]
  - Gonococcal infection [Recovered/Resolved]

NARRATIVE: CASE EVENT DATE: 20190928
